FAERS Safety Report 10213060 (Version 10)
Quarter: 2015Q1

REPORT INFORMATION
  Report Type: Spontaneous
  Country: JP (occurrence: JP)
  Receive Date: 20140603
  Receipt Date: 20150126
  Transmission Date: 20150720
  Serious: Yes (Death, Life-Threatening, Hospitalization, Other)
  Sender: FDA-Public Use
  Company Number: JP-MERCK-1406JPN000131

PATIENT
  Age: 49 Year
  Sex: Male
  Weight: 75 kg

DRUGS (13)
  1. SIMEPREVIR [Suspect]
     Active Substance: SIMEPREVIR
     Indication: CHRONIC HEPATITIS C
     Dosage: 100 MG, QD
     Route: 048
     Dates: start: 20140307, end: 20140510
  2. SOLU-MEDROL [Concomitant]
     Active Substance: METHYLPREDNISOLONE SODIUM SUCCINATE
     Dosage: 1 G, QD, DEVIDED DOSE FREQUENCY UNKNOWN
     Route: 051
     Dates: start: 20140519, end: 20140521
  3. ALLELOCK [Suspect]
     Active Substance: OLOPATADINE HYDROCHLORIDE
     Indication: RASH PRURITIC
  4. CRESTOR [Concomitant]
     Active Substance: ROSUVASTATIN CALCIUM
     Dosage: 5 MG, QD
     Route: 048
     Dates: start: 20140203
  5. PEGINTRON [Suspect]
     Active Substance: PEGINTERFERON ALFA-2B
     Dosage: 100 MICROGRAM, QW
     Route: 058
     Dates: start: 20140403, end: 20140508
  6. CEFAZOLIN [Concomitant]
     Active Substance: CEFAZOLIN
     Dosage: DAILY DOSE UNKNOWN
     Route: 051
     Dates: start: 20140522, end: 20140531
  7. MUCOSTA [Concomitant]
     Active Substance: REBAMIPIDE
     Indication: PROPHYLAXIS AGAINST GASTROINTESTINAL ULCER
     Dosage: 100 MG, AS NEEDED
     Route: 048
     Dates: start: 20140307, end: 20140510
  8. SOLU-MEDROL [Concomitant]
     Active Substance: METHYLPREDNISOLONE SODIUM SUCCINATE
     Dosage: 60 MG, QD, DEVIDED DOSE FREQUENCY UNKNOWN
     Route: 051
     Dates: start: 20140528, end: 20140529
  9. PEGINTRON [Suspect]
     Active Substance: PEGINTERFERON ALFA-2B
     Indication: CHRONIC HEPATITIS C
     Dosage: 120 MICROGRAM, QW
     Route: 058
     Dates: start: 20140307, end: 20140327
  10. REBETOL [Suspect]
     Active Substance: RIBAVIRIN
     Indication: CHRONIC HEPATITIS C
     Dosage: 400 MG, BID
     Route: 048
     Dates: start: 20140307, end: 20140510
  11. ALLELOCK [Suspect]
     Active Substance: OLOPATADINE HYDROCHLORIDE
     Indication: PRURITUS
     Dosage: 5 MG, BID
     Route: 048
     Dates: start: 20140327, end: 20140510
  12. LOXONIN [Concomitant]
     Active Substance: LOXOPROFEN SODIUM
     Indication: PYREXIA
     Dosage: 60 MG, AS NEEDED
     Route: 048
     Dates: start: 20140307, end: 20140510
  13. SOLU-MEDROL [Concomitant]
     Active Substance: METHYLPREDNISOLONE SODIUM SUCCINATE
     Dosage: 80 MG, DEVIDED DOSE FREQUENCY UNKNOWN
     Route: 051
     Dates: start: 20140522, end: 20140527

REACTIONS (30)
  - Hepatic cirrhosis [Fatal]
  - Aphagia [Unknown]
  - Malaise [Not Recovered/Not Resolved]
  - Blood pressure decreased [Unknown]
  - Disseminated intravascular coagulation [Not Recovered/Not Resolved]
  - Jaundice [Not Recovered/Not Resolved]
  - Hepatic encephalopathy [Unknown]
  - Hyperthyroidism [Not Recovered/Not Resolved]
  - Peritonitis [Fatal]
  - Viral sepsis [Fatal]
  - Altered state of consciousness [Unknown]
  - Dysphagia [Unknown]
  - Hepatitis fulminant [Fatal]
  - Hepatic necrosis [Fatal]
  - Liver disorder [Not Recovered/Not Resolved]
  - Pancreatitis acute [Fatal]
  - Labile blood pressure [Unknown]
  - Hepatic fibrosis [Fatal]
  - Renal impairment [Unknown]
  - Hepatic failure [Fatal]
  - Bacterial sepsis [Fatal]
  - Cellulitis [Unknown]
  - Aggression [Unknown]
  - Cardiovascular disorder [Unknown]
  - Rash [Not Recovered/Not Resolved]
  - Decreased appetite [Unknown]
  - Pruritus [Not Recovered/Not Resolved]
  - Hyperbilirubinaemia [Not Recovered/Not Resolved]
  - Decreased immune responsiveness [Fatal]
  - Shock [Not Recovered/Not Resolved]

NARRATIVE: CASE EVENT DATE: 2014
